FAERS Safety Report 7267296-2 (Version None)
Quarter: 2011Q1

REPORT INFORMATION
  Report Type: 
  Country: None (occurrence: None)
  Receive Date: 20110201
  Receipt Date: 20110126
  Transmission Date: 20110831
  Serious: Yes (Disabling)
  Sender: FDA-Public Use
  Company Number: DE-SANOFI-AVENTIS-2010SA073723

PATIENT
  Sex: Male
  Weight: 87 kg

DRUGS (1)
  1. LANTUS [Suspect]
     Route: 058
     Dates: start: 20050201

REACTIONS (1)
  - INCREASED BRONCHIAL SECRETION [None]
